FAERS Safety Report 13711815 (Version 1)
Quarter: 2017Q3

REPORT INFORMATION
  Report Type: Spontaneous
  Country: US (occurrence: US)
  Receive Date: 20170703
  Receipt Date: 20170703
  Transmission Date: 20171127
  Serious: Yes (Other)
  Sender: FDA-Public Use
  Company Number: US-SA-2017SA114876

PATIENT
  Sex: Male

DRUGS (3)
  1. TRIAMCINOLONE ACETONIDE. [Suspect]
     Active Substance: TRIAMCINOLONE ACETONIDE
     Indication: ASTHMA EXERCISE INDUCED
     Dosage: TRIAMCINOLONE ACETONIDE AEROSOL INH ALER ONE TO TWO PUFFS A DAY
     Route: 055
  2. TRIAMCINOLONE ACETONIDE. [Suspect]
     Active Substance: TRIAMCINOLONE ACETONIDE
     Indication: ASTHMA EXERCISE INDUCED
     Dosage: TRIAMCINOLONE ACETONIDE AEROSOL INH ALER THREE PUFFS TWICE A DAY
     Route: 055
  3. ALBUTEROL. [Concomitant]
     Active Substance: ALBUTEROL
     Indication: ASTHMA EXERCISE INDUCED
     Dosage: ONE TO TWO PUFFS A DAY
     Route: 055

REACTIONS (4)
  - Vision blurred [Recovered/Resolved]
  - Chorioretinopathy [Recovered/Resolved with Sequelae]
  - Visual acuity reduced [Recovered/Resolved]
  - Retinal detachment [Recovered/Resolved]
